FAERS Safety Report 8888904 (Version 2)
Quarter: 2012Q4

REPORT INFORMATION
  Report Type: 
  Country: US (occurrence: US)
  Receive Date: 20121106
  Receipt Date: 20121212
  Transmission Date: 20130627
  Serious: Yes (Other)
  Sender: FDA-Public Use
  Company Number: US-ASTRAZENECA-2012SE16946

PATIENT
  Sex: Male

DRUGS (2)
  1. CRESTOR [Suspect]
     Route: 048
     Dates: start: 201201
  2. NIACIN [Concomitant]

REACTIONS (3)
  - Rhabdomyolysis [Unknown]
  - Myalgia [Not Recovered/Not Resolved]
  - Intentional drug misuse [Unknown]
